FAERS Safety Report 9575311 (Version 1)
Quarter: 2013Q4

REPORT INFORMATION
  Report Type: Spontaneous
  Country: GB (occurrence: GB)
  Receive Date: 20131001
  Receipt Date: 20131001
  Transmission Date: 20140711
  Serious: Yes (Other)
  Sender: FDA-Public Use
  Company Number: PHHY2013GB106223

PATIENT
  Age: 47 Year
  Sex: Female
  Weight: 93.43 kg

DRUGS (3)
  1. CETIRIZINE [Suspect]
     Indication: ASTHMA
     Route: 048
     Dates: start: 2011, end: 20121202
  2. CETIRIZINE [Suspect]
     Indication: OFF LABEL USE
  3. ANTIBIOTICS [Concomitant]
     Indication: URINARY TRACT INFECTION

REACTIONS (4)
  - Pruritus [Not Recovered/Not Resolved]
  - Weight increased [Recovering/Resolving]
  - Drug ineffective [Recovered/Resolved]
  - Withdrawal syndrome [Not Recovered/Not Resolved]
